FAERS Safety Report 25512030 (Version 1)
Quarter: 2025Q3

REPORT INFORMATION
  Report Type: Spontaneous
  Country: US (occurrence: US)
  Receive Date: 20250703
  Receipt Date: 20250703
  Transmission Date: 20251020
  Serious: No
  Sender: RADIUS PHARM
  Company Number: US-RADIUS HEALTH INC.-2024US007574

PATIENT
  Sex: Female

DRUGS (1)
  1. TYMLOS [Suspect]
     Active Substance: ABALOPARATIDE
     Indication: Senile osteoporosis
     Route: 058

REACTIONS (10)
  - Migraine [Unknown]
  - Heart rate increased [Unknown]
  - Palpitations [Unknown]
  - Asthenia [Unknown]
  - Arthralgia [Unknown]
  - Bone pain [Unknown]
  - Photophobia [Unknown]
  - Pain in extremity [Unknown]
  - Depression [Unknown]
  - Hypotension [Unknown]
